FAERS Safety Report 4783384-4 (Version None)
Quarter: 2005Q3

REPORT INFORMATION
  Report Type: 
  Country: None (occurrence: None)
  Receive Date: 20050929
  Receipt Date: 20050922
  Transmission Date: 20060218
  Serious: Yes (Hospitalization)
  Sender: FDA-Public Use
  Company Number: IT-ROCHE-418648

PATIENT
  Age: 85 Year
  Sex: Male

DRUGS (1)
  1. ROCEPHIN [Suspect]
     Indication: BRONCHITIS ACUTE
     Dosage: FORM REPORTED AS VIAL.
     Route: 030
     Dates: start: 20050824, end: 20050825

REACTIONS (2)
  - CONJUNCTIVITIS [None]
  - STOMATITIS [None]
